FAERS Safety Report 6933721-7 (Version None)
Quarter: 2010Q3

REPORT INFORMATION
  Report Type: 
  Country: None (occurrence: None)
  Receive Date: 20100820
  Receipt Date: 20100810
  Transmission Date: 20110219
  Serious: Yes (Other)
  Sender: FDA-Public Use
  Company Number: US-PFIZER INC-2010101267

PATIENT
  Sex: Male

DRUGS (5)
  1. TIKOSYN [Suspect]
     Dosage: UNK
  2. NEXIUM [Concomitant]
     Dosage: UNK
  3. ZOCOR [Concomitant]
     Dosage: 20 MG, DAILY
  4. LASIX [Concomitant]
     Dosage: 40 MG, DAILY
  5. REGLAN [Concomitant]
     Dosage: 10 MG, 3X/DAY

REACTIONS (4)
  - CARDIAC VALVE DISEASE [None]
  - CHRONIC OBSTRUCTIVE PULMONARY DISEASE [None]
  - GASTROOESOPHAGEAL REFLUX DISEASE [None]
  - NON-SMALL CELL LUNG CANCER STAGE IIIA [None]
